FAERS Safety Report 5423998-1 (Version None)
Quarter: 2007Q3

REPORT INFORMATION
  Report Type: 
  Country: None (occurrence: None)
  Receive Date: 20070727
  Receipt Date: 20070727
  Transmission Date: 20080115
  Serious: No
  Sender: FDA-Public Use
  Company Number: 263463

PATIENT
  Age: 48 Year
  Sex: Female

DRUGS (6)
  1. LEVEMIR [Suspect]
     Indication: INSULIN-REQUIRING TYPE II DIABETES MELLITUS
     Dosage: 37 U, QD, SUBCUTANEOUS
     Route: 058
  2. BYETTA (EXENATIDE, EXENATIDE) [Concomitant]
  3. AMARYL (GLIMEPIRIDE) TABLET, 4 MG [Concomitant]
  4. METFORMIN (METFORMIN) TABLET, 500 MG [Concomitant]
  5. CADUET (AMLODIPINE BESILATE, ATORVASTATIN CALCIUM) [Concomitant]
  6. ZESTRIL [Concomitant]

REACTIONS (15)
  - ANXIETY [None]
  - BLOOD GLUCOSE FLUCTUATION [None]
  - DIZZINESS [None]
  - HEADACHE [None]
  - HUNGER [None]
  - INJECTION SITE MASS [None]
  - INJECTION SITE PRURITUS [None]
  - INJECTION SITE RASH [None]
  - INJECTION SITE SWELLING [None]
  - IRRITABILITY [None]
  - MUSCLE TWITCHING [None]
  - PERSONALITY CHANGE [None]
  - SOMNOLENCE [None]
  - URTICARIA [None]
  - WEIGHT INCREASED [None]
